FAERS Safety Report 8474007-1 (Version None)
Quarter: 2012Q2

REPORT INFORMATION
  Report Type: 
  Country: None (occurrence: None)
  Receive Date: 20120628
  Receipt Date: 20120405
  Transmission Date: 20120825
  Serious: Yes (Other)
  Sender: FDA-Public Use
  Company Number: US-MYLANLABS-2012S1006008

PATIENT
  Age: 59 Year
  Sex: Male
  Weight: 87.5 kg

DRUGS (14)
  1. SIMVASTATIN [Concomitant]
     Route: 048
     Dates: start: 20120205
  2. OLANZAPINE [Concomitant]
     Route: 048
     Dates: start: 20120205, end: 20120328
  3. FERROUS SULFATE TAB [Concomitant]
     Route: 048
     Dates: start: 20120206
  4. CLOZAPINE [Suspect]
     Indication: SCHIZOPHRENIA, PARANOID TYPE
     Dosage: 75MG IN THE MORNING AND 100MG AT BEDTIME
     Route: 048
     Dates: end: 20120314
  5. HALOPERIDOL [Concomitant]
     Route: 048
     Dates: start: 20120306, end: 20120314
  6. CLOZAPINE [Suspect]
     Dosage: 75MG IN THE MORNING AND 100MG AT BEDTIME
     Route: 048
     Dates: start: 20120315
  7. BENZTROPINE MESYLATE [Concomitant]
     Route: 048
     Dates: start: 20120205, end: 20120327
  8. SENNA S [Concomitant]
     Dosage: 2 TABLETS
     Route: 048
     Dates: start: 20120206, end: 20120312
  9. LEVOTHYROXINE [Concomitant]
     Route: 048
     Dates: start: 20120306
  10. CLONAZEPAM [Concomitant]
     Route: 048
     Dates: start: 20120305, end: 20120327
  11. LORAZEPAM [Concomitant]
     Route: 048
     Dates: start: 20120309
  12. DEPAKOTE ER [Concomitant]
     Route: 048
     Dates: start: 20120308
  13. LANSOPRAZOLE [Concomitant]
     Route: 048
     Dates: start: 20120205
  14. LISINOPRIL [Concomitant]
     Route: 048
     Dates: start: 20120206

REACTIONS (2)
  - GRANULOCYTOPENIA [None]
  - LEUKOPENIA [None]
